FAERS Safety Report 21682981 (Version 1)
Quarter: 2022Q4

REPORT INFORMATION
  Report Type: Spontaneous
  Country: IT (occurrence: IT)
  Receive Date: 20221205
  Receipt Date: 20221205
  Transmission Date: 20230113
  Serious: Yes (Other)
  Sender: FDA-Public Use
  Company Number: IT-ROCHE-3177145

PATIENT
  Age: 76 Year
  Sex: Female
  Weight: 69 kg

DRUGS (13)
  1. PREDNISONE [Suspect]
     Active Substance: PREDNISONE
     Indication: Follicular lymphoma
     Dosage: 2ND LINE SYSTEMIC TREATMENT, R-COMP
     Route: 065
     Dates: start: 20170209, end: 20170613
  2. RITUXIMAB [Suspect]
     Active Substance: RITUXIMAB
     Indication: Follicular lymphoma
     Dosage: UNK, 4TH LINE SYSTEMIC TREATMENT
     Route: 065
     Dates: start: 20190617, end: 20201207
  3. CYCLOPHOSPHAMIDE [Suspect]
     Active Substance: CYCLOPHOSPHAMIDE
     Indication: Follicular lymphoma
     Dosage: UNK, 2ND LINE SYSTEMIC TREATMENT
     Route: 065
     Dates: start: 20170209, end: 20170613
  4. VINCRISTINE [Suspect]
     Active Substance: VINCRISTINE
     Indication: Follicular lymphoma
     Dosage: 2ND LINE SYSTEMIC TREATMENT, R-COMP
     Route: 065
     Dates: start: 20170209, end: 20170613
  5. MABTHERA [Suspect]
     Active Substance: RITUXIMAB
     Indication: Follicular lymphoma
     Dosage: 2ND LINE SYSTEMIC TREATMENT, R-COMP
     Route: 065
     Dates: start: 20170209, end: 20170613
  6. MABTHERA [Suspect]
     Active Substance: RITUXIMAB
     Dosage: 1ST LINE SYSTEMIC TREATMENT
     Route: 065
     Dates: start: 20140505, end: 20161129
  7. LENALIDOMIDE [Suspect]
     Active Substance: LENALIDOMIDE
     Indication: Follicular lymphoma
     Dosage: 4TH LINE SYSTEMIC TREATMENT
     Route: 065
     Dates: start: 20190617, end: 20201207
  8. BENDAMUSTINE [Suspect]
     Active Substance: BENDAMUSTINE
     Indication: Follicular lymphoma
     Dosage: 1ST LINE SYSTEMIC TREATMENT
     Route: 065
     Dates: start: 20140528, end: 20161129
  9. DOXORUBICIN [Suspect]
     Active Substance: DOXORUBICIN
     Indication: Follicular lymphoma
     Dosage: 2ND LINE SYSTEMIC TREATMENT
     Route: 065
     Dates: start: 20170209, end: 20170613
  10. ZYDELIG [Suspect]
     Active Substance: IDELALISIB
     Indication: Follicular lymphoma
     Dosage: 3RD LINE SYSTEMIC TREATMENT
     Route: 065
     Dates: start: 20180808, end: 20190121
  11. DELAPRIL HYDROCHLORIDE\INDAPAMIDE [Concomitant]
     Active Substance: DELAPRIL HYDROCHLORIDE\INDAPAMIDE
     Dosage: 30 MILLIGRAM, 1/2 CP
     Route: 065
  12. ALLOPURINOL [Concomitant]
     Active Substance: ALLOPURINOL
     Dosage: 300 MG CP
     Route: 065
  13. SIMVASTATIN [Concomitant]
     Active Substance: SIMVASTATIN
     Dosage: 20 MILLIGRAM, 1/2 CP
     Route: 065

REACTIONS (8)
  - Degenerative aortic valve disease [Unknown]
  - Tricuspid valve incompetence [Unknown]
  - Pulmonary hypertension [Unknown]
  - Dyslipidaemia [Unknown]
  - Pulmonary arterial pressure [Unknown]
  - Breath sounds abnormal [Unknown]
  - Hypertension [Unknown]
  - Off label use [Unknown]
